FAERS Safety Report 5273223-X (Version None)
Quarter: 2007Q1

REPORT INFORMATION
  Report Type: 
  Country: None (occurrence: None)
  Receive Date: 20070322
  Receipt Date: 20070314
  Transmission Date: 20070707
  Serious: Yes (Hospitalization, Other)
  Sender: FDA-Public Use
  Company Number: DE-MERCK-0308DEU00029M

PATIENT
  Age: 31 Year
  Sex: Female

DRUGS (19)
  1. FOSAMAX [Suspect]
     Indication: OSTEOPOROSIS
     Route: 048
     Dates: start: 20000101, end: 20010301
  2. IPRATROPIUM BROMIDE [Concomitant]
     Route: 065
  3. FLUTICASONE PROPIONATE [Concomitant]
     Route: 065
  4. FORMOTEROL FUMARATE [Concomitant]
  5. THEOPHYLLINE [Concomitant]
     Route: 065
  6. TERBUTALINE SULFATE [Concomitant]
     Route: 065
  7. FUROSEMIDE [Concomitant]
     Route: 065
  8. TORSEMIDE [Concomitant]
     Route: 065
  9. GLOBULIN, IMMUNE [Concomitant]
     Route: 065
  10. FOSAMAX [Suspect]
     Route: 048
  11. FOSAMAX [Suspect]
     Route: 048
     Dates: start: 20030101, end: 20030701
  12. DEXAMETHASONE [Suspect]
     Indication: ASTHMA
     Route: 048
  13. MONTELUKAST SODIUM [Concomitant]
     Route: 048
  14. ALBUTEROL SULFATE [Concomitant]
     Route: 065
  15. INTERFERON (UNSPECIFIED) [Concomitant]
     Route: 065
  16. RIBAVIRIN [Concomitant]
     Route: 065
  17. PREDNISOLONE [Concomitant]
     Route: 065
     Dates: end: 20000101
  18. PREDNISOLONE [Concomitant]
     Route: 065
     Dates: start: 20000101, end: 20000701
  19. PREDNISOLONE [Concomitant]
     Route: 065
     Dates: start: 20070301

REACTIONS (8)
  - ADVERSE EVENT [None]
  - DRUG EXPOSURE DURING PREGNANCY [None]
  - GESTATIONAL DIABETES [None]
  - OSTEONECROSIS [None]
  - SALIVARY GLAND CALCULUS [None]
  - SELECTIVE IGA IMMUNODEFICIENCY [None]
  - SIALOADENITIS [None]
  - TOOTH DISORDER [None]
